FAERS Safety Report 8318748-5 (Version None)
Quarter: 2012Q2

REPORT INFORMATION
  Report Type: 
  Country: None (occurrence: None)
  Receive Date: 20120427
  Receipt Date: 20090814
  Transmission Date: 20120825
  Serious: No
  Sender: FDA-Public Use
  Company Number: US-TEVA-2009009656

PATIENT
  Sex: Male
  Weight: 81.72 kg

DRUGS (1)
  1. NUVIGIL [Suspect]
     Indication: NARCOLEPSY
     Route: 048
     Dates: start: 20090814

REACTIONS (2)
  - MENTAL IMPAIRMENT [None]
  - SOMNOLENCE [None]
